FAERS Safety Report 25682952 (Version 1)
Quarter: 2025Q3

REPORT INFORMATION
  Report Type: Report from Study
  Country: AR (occurrence: AR)
  Receive Date: 20250814
  Receipt Date: 20250814
  Transmission Date: 20251020
  Serious: Yes (Hospitalization)
  Sender: ABBVIE
  Company Number: AR-ABBVIE-6414117

PATIENT
  Age: 77 Year
  Sex: Male

DRUGS (1)
  1. SKYRIZI [Suspect]
     Active Substance: RISANKIZUMAB-RZAA
     Indication: Crohn^s disease
     Dosage: 150 MG
     Route: 058
     Dates: start: 20240912

REACTIONS (1)
  - Cerebral thrombosis [Not Recovered/Not Resolved]

NARRATIVE: CASE EVENT DATE: 20250810
